FAERS Safety Report 8245451-2 (Version None)
Quarter: 2012Q1

REPORT INFORMATION
  Report Type: 
  Country: None (occurrence: None)
  Receive Date: 20120329
  Receipt Date: 20120323
  Transmission Date: 20120608
  Serious: Yes (Other)
  Sender: FDA-Public Use
  Company Number: JP-MERCK-1203USA03666

PATIENT

DRUGS (3)
  1. SODIUM ALGINATE [Concomitant]
     Route: 048
  2. PEPCID [Suspect]
     Route: 041
  3. SUCRALFATE [Concomitant]
     Route: 065

REACTIONS (1)
  - DRUG INEFFECTIVE [None]
